FAERS Safety Report 13913004 (Version 1)
Quarter: 2017Q3

REPORT INFORMATION
  Report Type: Spontaneous
  Country: US (occurrence: US)
  Receive Date: 20170828
  Receipt Date: 20170828
  Transmission Date: 20171127
  Serious: No
  Sender: FDA-Public Use
  Company Number: US-TEVA-800183ACC

PATIENT
  Sex: Female

DRUGS (12)
  1. PREDNISONE. [Concomitant]
     Active Substance: PREDNISONE
  2. XANAX [Concomitant]
     Active Substance: ALPRAZOLAM
  3. AMITRIPTYLINE [Concomitant]
     Active Substance: AMITRIPTYLINE
  4. HALOPERIDOL. [Concomitant]
     Active Substance: HALOPERIDOL
  5. ZOLPIDEM [Concomitant]
     Active Substance: ZOLPIDEM\ZOLPIDEM TARTRATE
  6. BACLOFEN. [Concomitant]
     Active Substance: BACLOFEN
  7. NORCO [Concomitant]
     Active Substance: ACETAMINOPHEN\HYDROCODONE BITARTRATE
  8. LEXAPRO [Concomitant]
     Active Substance: ESCITALOPRAM OXALATE
  9. NEURONTIN [Concomitant]
     Active Substance: GABAPENTIN
  10. TIZANIDINE. [Concomitant]
     Active Substance: TIZANIDINE
  11. LYRICA [Concomitant]
     Active Substance: PREGABALIN
  12. COPAXONE [Suspect]
     Active Substance: GLATIRAMER ACETATE
     Indication: MULTIPLE SCLEROSIS
     Route: 058

REACTIONS (3)
  - Anxiety [Unknown]
  - Vomiting [Unknown]
  - Muscle spasms [Unknown]
